FAERS Safety Report 7693214-9 (Version None)
Quarter: 2011Q3

REPORT INFORMATION
  Report Type: 
  Country: None (occurrence: None)
  Receive Date: 20110819
  Receipt Date: 20110804
  Transmission Date: 20111222
  Serious: Yes (Hospitalization)
  Sender: FDA-Public Use
  Company Number: US-UCBSA-021769

PATIENT
  Age: 32 Year
  Sex: Male
  Weight: 157 kg

DRUGS (11)
  1. PHENTERMINE HYDROCHLORIDE [Suspect]
     Indication: DECREASED APPETITE
  2. METOCLOPRAMIDE [Concomitant]
     Dosage: 10 MG EVERY 8 HOURS AS NEEDED
     Route: 048
  3. OXYCODONE HCL EXTENDED-RELEASE [Concomitant]
     Route: 048
  4. PROCHLORPERAZINE [Concomitant]
     Dosage: 25 MG EVERY 12 HOURS AS NEEDED
     Route: 054
  5. METOPROLOL SUCCINATE [Concomitant]
     Route: 048
  6. DICYCLOMINE [Concomitant]
     Route: 048
  7. OXYCODONE/ACETAMINOPHEN [Concomitant]
     Dosage: 2 TABLETS EVERY 4 HOURS AS NEEDED
     Route: 048
  8. ESOMEPRAZOLE MAGNESIUM [Concomitant]
     Route: 048
  9. TESTOSTERONE [Concomitant]
     Route: 061
  10. IRBESARTAN + HYDROCHLOROTHIAZIDE [Concomitant]
     Dosage: IRBESARTAN 300 MG; HYDROCHLOROTHIAZIDE: 25 MG DAILY
     Route: 048
  11. LEVOTHYROXINE SODIUM [Concomitant]
     Route: 048

REACTIONS (4)
  - RENAL FAILURE ACUTE [None]
  - RHABDOMYOLYSIS [None]
  - INCORRECT DOSE ADMINISTERED [None]
  - CALCULUS URINARY [None]
